FAERS Safety Report 15855276 (Version 1)
Quarter: 2019Q1

REPORT INFORMATION
  Report Type: Spontaneous
  Country: NL (occurrence: NL)
  Receive Date: 20190122
  Receipt Date: 20190122
  Transmission Date: 20190417
  Serious: Yes (Other)
  Sender: FDA-Public Use
  Company Number: NL-TERSERA THERAPEUTICS LLC-TSR2019000403

PATIENT

DRUGS (8)
  1. CYCLOPHOSPHAMIDE. [Suspect]
     Active Substance: CYCLOPHOSPHAMIDE
     Dosage: UNK (6 CYCLES)
     Route: 065
     Dates: start: 20180302
  2. ZOLADEX [Suspect]
     Active Substance: GOSERELIN ACETATE
     Indication: ANDROGEN THERAPY
     Dosage: UNK
     Route: 058
     Dates: start: 20181003
  3. DOXORUBICIN [Suspect]
     Active Substance: DOXORUBICIN
     Dosage: UNK (6 CYCLES)
     Route: 065
     Dates: start: 20180302
  4. CISPLATIN. [Suspect]
     Active Substance: CISPLATIN
     Dosage: UNK (6 CYCLES)
     Route: 065
     Dates: start: 20180302
  5. CYCLOPHOSPHAMIDE. [Suspect]
     Active Substance: CYCLOPHOSPHAMIDE
     Indication: METASTASES TO NERVOUS SYSTEM
     Dosage: UNK (6 CYCLES)
     Route: 065
     Dates: start: 20160502, end: 20160930
  6. BICALUTAMIDE. [Suspect]
     Active Substance: BICALUTAMIDE
     Indication: ANDROGEN THERAPY
     Dosage: UNK
     Route: 048
     Dates: start: 20181003
  7. DOXORUBICIN [Suspect]
     Active Substance: DOXORUBICIN
     Indication: METASTASES TO NERVOUS SYSTEM
     Dosage: UNK (6 CYCLES)
     Route: 065
     Dates: start: 20160502, end: 20160930
  8. CISPLATIN. [Suspect]
     Active Substance: CISPLATIN
     Indication: METASTASES TO NERVOUS SYSTEM
     Dosage: UNK (6 CYCLES)
     Route: 065
     Dates: start: 20160502, end: 20160930

REACTIONS (3)
  - Metastases to central nervous system [Unknown]
  - Drug effect incomplete [Unknown]
  - Malignant neoplasm progression [Unknown]

NARRATIVE: CASE EVENT DATE: 20170613
